FAERS Safety Report 7989881-2 (Version None)
Quarter: 2011Q4

REPORT INFORMATION
  Report Type: 
  Country: None (occurrence: None)
  Receive Date: 20111219
  Receipt Date: 20110125
  Transmission Date: 20120403
  Serious: No
  Sender: FDA-Public Use
  Company Number: US-ASTRAZENECA-2011SE04480

PATIENT
  Age: 68 Year

DRUGS (3)
  1. CRESTOR [Suspect]
     Indication: HYPERTENSION
     Route: 048
     Dates: start: 20030101
  2. CRESTOR [Suspect]
     Indication: RENAL DISORDER
     Route: 048
     Dates: start: 20030101
  3. CRESTOR [Suspect]
     Indication: BLOOD CHOLESTEROL
     Route: 048
     Dates: start: 20030101

REACTIONS (1)
  - COLITIS [None]
